FAERS Safety Report 24456719 (Version 1)
Quarter: 2024Q4

REPORT INFORMATION
  Report Type: Report from Study
  Country: CA (occurrence: CA)
  Receive Date: 20241017
  Receipt Date: 20241017
  Transmission Date: 20250114
  Serious: Yes (Other)
  Sender: NOVARTIS
  Company Number: CA-002147023-NVSC2024CA168039

PATIENT
  Age: 77 Year
  Sex: Female

DRUGS (2)
  1. COSENTYX [Suspect]
     Active Substance: SECUKINUMAB
     Indication: Psoriatic arthropathy
     Dosage: 300 MG, QW (WEEKS 0, 1, 2, 3, AND 4)
     Route: 058
     Dates: start: 20240731
  2. COSENTYX [Suspect]
     Active Substance: SECUKINUMAB
     Dosage: 300 MG, QMO
     Route: 058

REACTIONS (3)
  - Lower respiratory tract infection [Unknown]
  - COVID-19 [Unknown]
  - Nasopharyngitis [Unknown]
